FAERS Safety Report 6598986-2 (Version None)
Quarter: 2010Q1

REPORT INFORMATION
  Report Type: 
  Country: None (occurrence: None)
  Receive Date: 20100224
  Receipt Date: 20090527
  Transmission Date: 20100710
  Serious: No
  Sender: FDA-Public Use
  Company Number: US-BRISTOL-MYERS SQUIBB COMPANY-14634695

PATIENT
  Age: 60 Year
  Sex: Male

DRUGS (7)
  1. GLUCOPHAGE [Suspect]
     Indication: DIABETES MELLITUS
     Dates: start: 20080501
  2. PROCRIT [Concomitant]
  3. ACTIGALL [Concomitant]
  4. ASPIRIN [Concomitant]
  5. BACTRIM [Concomitant]
  6. LOPID [Concomitant]
     Dates: start: 20081101
  7. VITAMIN E [Concomitant]

REACTIONS (2)
  - AGEUSIA [None]
  - ANOSMIA [None]
